FAERS Safety Report 9015440 (Version 1)
Quarter: 2013Q1

REPORT INFORMATION
  Report Type: Spontaneous
  Country: US (occurrence: None)
  Receive Date: 20130102
  Receipt Date: 20130102
  Transmission Date: 20140127
  Serious: Yes (Hospitalization)
  Sender: FDA-Public Use
  Company Number: 2012NUEUSA00147

PATIENT
  Age: 47 Year
  Sex: Female

DRUGS (1)
  1. NUEDEXTA (DEXTROMETHORPHAN HYDROBROMIDE 20 MG, QUINIDINE SULFATE 10 MG) CAPSULE, 20/10MG [Suspect]
     Indication: AFFECT LABILITY
     Dosage: 1 CAP
     Dates: start: 2012, end: 2012

REACTIONS (4)
  - Gastrointestinal haemorrhage [None]
  - Drug ineffective [None]
  - Asthenia [None]
  - Haemoglobin decreased [None]
